FAERS Safety Report 15283790 (Version 1)
Quarter: 2018Q3

REPORT INFORMATION
  Report Type: Spontaneous
  Country: US (occurrence: US)
  Receive Date: 20180801
  Receipt Date: 20180801
  Transmission Date: 20181010
  Serious: Yes (Disabling)
  Sender: FDA-Public Use
  Company Number: None

PATIENT
  Age: 26 Year
  Sex: Female
  Weight: 86.18 kg

DRUGS (10)
  1. LORATIDINE [Concomitant]
     Active Substance: LORATADINE
  2. VALACYCLOVIR [Concomitant]
     Active Substance: VALACYCLOVIR HYDROCHLORIDE
  3. MULTIVITAMIN [Concomitant]
     Active Substance: VITAMINS
  4. AUGMENTIN [Concomitant]
     Active Substance: AMOXICILLIN\CLAVULANATE POTASSIUM
  5. GABAPENTIN. [Concomitant]
     Active Substance: GABAPENTIN
  6. HYDROXYZINE [Concomitant]
     Active Substance: HYDROXYZINE HYDROCHLORIDE
  7. VITAMIN D [Concomitant]
     Active Substance: CHOLECALCIFEROL
  8. PARAGARD T 380A [Suspect]
     Active Substance: COPPER
     Dates: start: 20150615, end: 20171229
  9. LOW DOSE NALTREXONE [Concomitant]
     Active Substance: NALTREXONE
  10. IRON [Concomitant]
     Active Substance: IRON

REACTIONS (10)
  - Blood copper increased [None]
  - Fatigue [None]
  - Condition aggravated [None]
  - Anaemia [None]
  - Endometriosis [None]
  - Adenomyosis [None]
  - Autoimmune disorder [None]
  - Loss of personal independence in daily activities [None]
  - Malaise [None]
  - Nervous system disorder [None]

NARRATIVE: CASE EVENT DATE: 20170901
